FAERS Safety Report 9062680 (Version 1)
Quarter: 2013Q1

REPORT INFORMATION
  Report Type: Spontaneous
  Country: US (occurrence: US)
  Receive Date: 20130125
  Receipt Date: 20130125
  Transmission Date: 20140127
  Serious: No
  Sender: FDA-Public Use
  Company Number: US-VIIV HEALTHCARE LIMITED-A0968408A

PATIENT
  Age: 56 Year
  Sex: Female

DRUGS (3)
  1. EPIVIR [Suspect]
     Indication: HIV INFECTION
     Dosage: 150MG PER DAY
     Route: 048
  2. ZIAGEN [Concomitant]
     Indication: HIV INFECTION
     Dosage: 300MG TWICE PER DAY
  3. ISENTRESS [Concomitant]
     Indication: HIV INFECTION
     Dosage: 400MG TWICE PER DAY
     Route: 048

REACTIONS (1)
  - Overdose [Recovered/Resolved]
